FAERS Safety Report 9166817 (Version 1)
Quarter: 2012Q4

REPORT INFORMATION
  Report Type: 
  Country: BR (occurrence: BR)
  Receive Date: 20121101
  Receipt Date: 20121101
  Transmission Date: 20130627
  Serious: Yes (Hospitalization)
  Sender: FDA-Public Use
  Company Number: BR-BIOMARINP-003154

PATIENT
  Age: 5 None
  Sex: Male
  Weight: 20.6 kg

DRUGS (1)
  1. NAGLAZYME [Suspect]
     Indication: MUCOPOLYSACCHARIDOSIS VI
     Route: 041
     Dates: start: 20100706

REACTIONS (5)
  - Upper respiratory tract infection [Unknown]
  - Arrhythmia [None]
  - Tachycardia [None]
  - Electrocardiogram repolarisation abnormality [None]
  - Influenza [None]
